FAERS Safety Report 13444167 (Version 2)
Quarter: 2017Q2

REPORT INFORMATION
  Report Type: Spontaneous
  Country: AR (occurrence: AR)
  Receive Date: 20170414
  Receipt Date: 20170516
  Transmission Date: 20170830
  Serious: Yes (Other)
  Sender: FDA-Public Use
  Company Number: AR-009507513-1704ARG006276

PATIENT

DRUGS (1)
  1. KEYTRUDA [Suspect]
     Active Substance: PEMBROLIZUMAB
     Indication: MALIGNANT MELANOMA
     Dosage: UNK, CYCLICAL
     Route: 042
     Dates: start: 2016, end: 20170331

REACTIONS (2)
  - Vasculitis [Recovering/Resolving]
  - Impetigo [Unknown]

NARRATIVE: CASE EVENT DATE: 201704
